FAERS Safety Report 7623758-7 (Version None)
Quarter: 2011Q3

REPORT INFORMATION
  Report Type: 
  Country: None (occurrence: None)
  Receive Date: 20110720
  Receipt Date: 20110713
  Transmission Date: 20111222
  Serious: Yes (Hospitalization, Other)
  Sender: FDA-Public Use
  Company Number: FR-GLAXOSMITHKLINE-B0729587A

PATIENT
  Sex: Male
  Weight: 86 kg

DRUGS (6)
  1. PAMIDRONATE DISODIUM [Concomitant]
     Indication: BONE LESION
     Route: 042
     Dates: start: 20100215
  2. THALIDOMIDE [Suspect]
     Indication: MULTIPLE MYELOMA
     Dosage: 200MG PER DAY
     Route: 048
     Dates: start: 20100501, end: 20110522
  3. PREDNISONE [Suspect]
     Indication: MULTIPLE MYELOMA
     Route: 065
     Dates: start: 20100501, end: 20110415
  4. EPOGEN [Concomitant]
     Indication: ANAEMIA
     Dosage: 4285.7IU WEEKLY
     Route: 058
  5. MELPHALAN HYDROCHLORIDE [Suspect]
     Indication: MULTIPLE MYELOMA
     Dosage: 22MG PER DAY
     Route: 048
     Dates: start: 20100501, end: 20110415
  6. ASPIRIN [Concomitant]
     Indication: PROPHYLAXIS
     Dosage: 75MG PER DAY
     Route: 048

REACTIONS (2)
  - GENERAL PHYSICAL HEALTH DETERIORATION [None]
  - ACUTE MYELOID LEUKAEMIA [None]
